FAERS Safety Report 5790177-8 (Version None)
Quarter: 2008Q2

REPORT INFORMATION
  Report Type: 
  Country: None (occurrence: None)
  Receive Date: 20080626
  Receipt Date: 20080430
  Transmission Date: 20081010
  Serious: No
  Sender: FDA-Public Use
  Company Number: A0703319A

PATIENT
  Age: 32 Year
  Sex: Female
  Weight: 69.5 kg

DRUGS (1)
  1. ALLI [Suspect]
     Route: 048
     Dates: start: 20080101

REACTIONS (18)
  - ABDOMINAL DISCOMFORT [None]
  - ABDOMINAL PAIN UPPER [None]
  - DEFAECATION URGENCY [None]
  - DEPRESSION [None]
  - DRUG INEFFECTIVE [None]
  - FATIGUE [None]
  - FEELING ABNORMAL [None]
  - FLATULENCE [None]
  - FLUID RETENTION [None]
  - FRUSTRATION [None]
  - GASTROINTESTINAL DISORDER [None]
  - HIP ARTHROPLASTY [None]
  - MENSTRUATION DELAYED [None]
  - MYALGIA [None]
  - NASOPHARYNGITIS [None]
  - RECTAL DISCHARGE [None]
  - STEATORRHOEA [None]
  - WEIGHT INCREASED [None]
